FAERS Safety Report 13961311 (Version 4)
Quarter: 2022Q1

REPORT INFORMATION
  Report Type: Spontaneous
  Country: US (occurrence: US)
  Receive Date: 20170912
  Receipt Date: 20220218
  Transmission Date: 20220424
  Serious: Yes (Other)
  Sender: FDA-Public Use
  Company Number: US-SA-2017SA166997

PATIENT
  Age: 36 Year
  Sex: Male

DRUGS (2)
  1. DUPIXENT [Suspect]
     Active Substance: DUPILUMAB
     Indication: Dermatitis atopic
     Dosage: 600 MG,1X
     Route: 058
     Dates: start: 20170829, end: 20170829
  2. HALOG [Concomitant]
     Active Substance: HALCINONIDE
     Indication: Dermatitis atopic
     Dosage: UNK UNK,QD
     Route: 065
     Dates: start: 20160728

REACTIONS (1)
  - Erythema multiforme [Recovered/Resolved]

NARRATIVE: CASE EVENT DATE: 20170901
